FAERS Safety Report 6234542-3 (Version None)
Quarter: 2009Q2

REPORT INFORMATION
  Report Type: 
  Country: None (occurrence: None)
  Receive Date: 20090616
  Receipt Date: 20090616
  Transmission Date: 20091009
  Serious: Yes (Life-Threatening, Hospitalization)
  Sender: FDA-Public Use
  Company Number: None

PATIENT
  Age: 55 Year
  Sex: Male
  Weight: 79.3795 kg

DRUGS (1)
  1. HUMALOG [Suspect]
     Indication: TYPE 1 DIABETES MELLITUS
     Dosage: 30 UNITS PER DAY SQ
     Route: 058
     Dates: start: 20090601, end: 20090611

REACTIONS (2)
  - DRUG INEFFECTIVE [None]
  - INCORRECT STORAGE OF DRUG [None]
